FAERS Safety Report 15228588 (Version 2)
Quarter: 2019Q1

REPORT INFORMATION
  Report Type: Spontaneous
  Country: US (occurrence: US)
  Receive Date: 20180801
  Receipt Date: 20190326
  Transmission Date: 20190417
  Serious: Yes (Hospitalization)
  Sender: FDA-Public Use
  Company Number: US-PROCTER_AND_GAMBLE-GS17146328

PATIENT
  Age: 20 Year
  Sex: Female
  Weight: 89.34 kg

DRUGS (1)
  1. CREST BAKING SODA AND PEROXIDE WHITENING WITH TARTAR PROTECTION [Suspect]
     Active Substance: SODIUM FLUORIDE
     Indication: DENTAL DISORDER PROPHYLAXIS
     Dosage: 2X DAILY
     Route: 002
     Dates: start: 20171214, end: 20171228

REACTIONS (40)
  - Dysphagia [Unknown]
  - Tonsillitis [Unknown]
  - Toothache [Unknown]
  - Chills [Unknown]
  - Tonsillar exudate [Unknown]
  - Oropharyngeal pain [Recovering/Resolving]
  - Mouth ulceration [Unknown]
  - Aphthous ulcer [Unknown]
  - Hypovolaemia [Unknown]
  - Sepsis [Unknown]
  - Mouth swelling [Not Recovered/Not Resolved]
  - Oral pain [Not Recovered/Not Resolved]
  - Corrosive oropharyngeal injury [Unknown]
  - Dehydration [Unknown]
  - Odynophagia [Unknown]
  - Pyrexia [Recovering/Resolving]
  - Depressed mood [Unknown]
  - Oral discomfort [Unknown]
  - Pain [Unknown]
  - Gingival pain [Not Recovered/Not Resolved]
  - Gingival discomfort [Unknown]
  - Poisoning [Unknown]
  - Blood osmolarity decreased [Unknown]
  - Chemical burn of respiratory tract [Unknown]
  - Pharyngeal oedema [Not Recovered/Not Resolved]
  - Granulocyte count increased [Unknown]
  - Haemoglobin decreased [Unknown]
  - Oral infection [Unknown]
  - Bacterial infection [Unknown]
  - Body temperature increased [Recovered/Resolved]
  - Lymphocyte count decreased [Unknown]
  - Mucosal inflammation [Unknown]
  - Blood calcium decreased [Unknown]
  - Lymphadenopathy [Unknown]
  - Oropharyngeal discomfort [Unknown]
  - Heart rate increased [Unknown]
  - Tachycardia [Unknown]
  - Alanine aminotransferase increased [Unknown]
  - Mucosal dryness [Unknown]
  - Haematocrit decreased [Unknown]

NARRATIVE: CASE EVENT DATE: 201712
